FAERS Safety Report 6602314-3 (Version None)
Quarter: 2010Q1

REPORT INFORMATION
  Report Type: 
  Country: None (occurrence: None)
  Receive Date: 20100225
  Receipt Date: 20100218
  Transmission Date: 20100710
  Serious: Yes (Death)
  Sender: FDA-Public Use
  Company Number: A0786613A

PATIENT
  Sex: Female
  Weight: 125 kg

DRUGS (6)
  1. ADVAIR DISKUS 100/50 [Suspect]
     Indication: DRUG USE FOR UNKNOWN INDICATION
     Route: 055
     Dates: start: 20070101
  2. SEREVENT [Suspect]
     Indication: DRUG USE FOR UNKNOWN INDICATION
     Route: 055
  3. SINGULAIR [Concomitant]
  4. ALBUTEROL [Concomitant]
  5. PREDNISONE TAB [Concomitant]
  6. TYLENOL-500 [Concomitant]

REACTIONS (3)
  - ASTHMA [None]
  - STATUS ASTHMATICUS [None]
  - UPPER RESPIRATORY TRACT INFECTION [None]
